FAERS Safety Report 16844531 (Version 1)
Quarter: 2019Q4

REPORT INFORMATION
  Report Type: Spontaneous
  Country: US (occurrence: US)
  Receive Date: 20190923
  Receipt Date: 20190923
  Transmission Date: 20200122
  Serious: Yes (Other)
  Sender: FDA-Public Use
  Company Number: None

PATIENT
  Age: 16 Year
  Sex: Male
  Weight: 58.5 kg

DRUGS (3)
  1. STRATTERA [Concomitant]
     Active Substance: ATOMOXETINE HYDROCHLORIDE
  2. GUANFACINE. [Concomitant]
     Active Substance: GUANFACINE
  3. METHYPHENIDATE [Suspect]
     Active Substance: METHYLPHENIDATE
     Indication: ATTENTION DEFICIT/HYPERACTIVITY DISORDER
     Dosage: ?          QUANTITY:1 TABLET(S);?
     Route: 048
     Dates: start: 20190920, end: 20190922

REACTIONS (8)
  - Feeling hot [None]
  - Product substitution issue [None]
  - Insomnia [None]
  - Disturbance in attention [None]
  - Feeling abnormal [None]
  - Scar [None]
  - Dermatillomania [None]
  - Compulsions [None]

NARRATIVE: CASE EVENT DATE: 20190922
